FAERS Safety Report 6529573-X (Version None)
Quarter: 2010Q1

REPORT INFORMATION
  Report Type: 
  Country: None (occurrence: None)
  Receive Date: 20100107
  Receipt Date: 20091228
  Transmission Date: 20100710
  Serious: Yes (Hospitalization, Other)
  Sender: FDA-Public Use
  Company Number: FR-SANOFI-AVENTIS-2009SA011372

PATIENT
  Age: 23 Year
  Sex: Female

DRUGS (8)
  1. STILNOX [Suspect]
     Route: 048
  2. STILNOX [Suspect]
     Route: 048
     Dates: start: 20080708, end: 20080708
  3. TERCIAN [Suspect]
     Route: 048
     Dates: end: 20080724
  4. TERCIAN [Suspect]
     Route: 048
     Dates: start: 20080708, end: 20080708
  5. TEMESTA [Suspect]
     Dosage: DOSE:0.5 UNIT(S)
     Route: 048
     Dates: end: 20080724
  6. TEMESTA [Suspect]
     Dosage: DOSE:15 UNIT(S)
     Route: 048
     Dates: start: 20080708, end: 20080708
  7. LAMICTAL [Suspect]
     Indication: EPILEPSY
     Route: 048
     Dates: end: 20080724
  8. SERESTA [Concomitant]

REACTIONS (12)
  - DRUG ABUSE [None]
  - DRUG EXPOSURE DURING PREGNANCY [None]
  - HEADACHE [None]
  - HYPERREFLEXIA [None]
  - HYPERTENSION [None]
  - MULTIPLE DRUG OVERDOSE INTENTIONAL [None]
  - PHOSPHENES [None]
  - PLACENTAL INSUFFICIENCY [None]
  - PRE-ECLAMPSIA [None]
  - PREMATURE LABOUR [None]
  - TINNITUS [None]
  - URINE PROTEIN, QUANTITATIVE [None]
